FAERS Safety Report 6347586-8 (Version None)
Quarter: 2009Q3

REPORT INFORMATION
  Report Type: 
  Country: None (occurrence: None)
  Receive Date: 20090909
  Receipt Date: 20090909
  Transmission Date: 20100115
  Serious: No
  Sender: FDA-Public Use
  Company Number: None

PATIENT
  Sex: Female
  Weight: 78.4723 kg

DRUGS (1)
  1. CALCITONIN-SALMON [Suspect]
     Indication: OSTEOPOROSIS
     Dosage: ONE SPRAY ONCE A DAY NASAL
     Dates: start: 20090809, end: 20090825

REACTIONS (6)
  - DIZZINESS [None]
  - DYSPHAGIA [None]
  - INSOMNIA [None]
  - MUSCLE SPASMS [None]
  - MYODESOPSIA [None]
  - NASAL ULCER [None]
